FAERS Safety Report 9288603 (Version 1)
Quarter: 2013Q2

REPORT INFORMATION
  Report Type: Spontaneous
  Country: DK (occurrence: DK)
  Receive Date: 20130514
  Receipt Date: 20130514
  Transmission Date: 20140414
  Serious: Yes (Hospitalization)
  Sender: FDA-Public Use
  Company Number: DK-TEVA-403750ISR

PATIENT
  Age: 35 Year
  Sex: Female

DRUGS (4)
  1. SALBUTAMOL [Suspect]
     Indication: ASTHMA
     Route: 055
  2. IPRATROPIUM BROMIDE [Concomitant]
     Indication: ASTHMA
     Route: 055
  3. METHYLPREDNISOLONE [Concomitant]
     Indication: ASTHMA
     Dosage: 80MG AS REQUIRED
     Route: 040
  4. PREDNISOLONE [Concomitant]
     Indication: ASTHMA
     Route: 048

REACTIONS (1)
  - Lactic acidosis [Recovering/Resolving]
